FAERS Safety Report 20592083 (Version 1)
Quarter: 2022Q1

REPORT INFORMATION
  Report Type: Spontaneous
  Country: BR (occurrence: None)
  Receive Date: 20220314
  Receipt Date: 20220314
  Transmission Date: 20220423
  Serious: Yes (Other)
  Sender: FDA-Public Use
  Company Number: BR-ROCHE-3008082

PATIENT
  Age: 65 Year
  Sex: Male
  Weight: 94.2 kg

DRUGS (9)
  1. MABTHERA [Suspect]
     Active Substance: RITUXIMAB
     Indication: Mantle cell lymphoma
     Dosage: 12 CYCLES, 1 CYCLE EVERY 21 DAYS
     Route: 042
     Dates: start: 20210920
  2. MABTHERA [Suspect]
     Active Substance: RITUXIMAB
     Dosage: PER 12 EVERY 21 DAYS
     Route: 042
     Dates: start: 20220118, end: 20220118
  3. METOPROLOL [Concomitant]
     Active Substance: METOPROLOL
  4. DOXAZOSIN [Concomitant]
     Active Substance: DOXAZOSIN MESYLATE
  5. SODIUM CHLORIDE [Concomitant]
     Active Substance: SODIUM CHLORIDE
  6. ACETAMINOPHEN [Concomitant]
     Active Substance: ACETAMINOPHEN
  7. INDAPAMIDE [Concomitant]
     Active Substance: INDAPAMIDE
  8. LOSARTAN [Concomitant]
     Active Substance: LOSARTAN
  9. AMLODIPINE [Concomitant]
     Active Substance: AMLODIPINE BESYLATE

REACTIONS (4)
  - Tremor [Recovered/Resolved]
  - Pain in extremity [Recovered/Resolved]
  - Hypotension [Recovered/Resolved]
  - Feeling cold [Recovered/Resolved]

NARRATIVE: CASE EVENT DATE: 20220118
